FAERS Safety Report 5012345-5 (Version None)
Quarter: 2006Q2

REPORT INFORMATION
  Report Type: 
  Country: None (occurrence: None)
  Receive Date: 20060404
  Receipt Date: 20060224
  Transmission Date: 20061013
  Serious: No
  Sender: FDA-Public Use
  Company Number: US200601003374

PATIENT
  Age: 47 Year
  Sex: Female

DRUGS (2)
  1. CYMBALTA [Suspect]
     Indication: ANXIETY
     Dosage: 40 MG, DAILY (1/D); 20 MG, DAILY (1/D);
     Dates: end: 20051101
  2. CYMBALTA [Suspect]
     Indication: ANXIETY
     Dosage: 40 MG, DAILY (1/D); 20 MG, DAILY (1/D);
     Dates: start: 20050401

REACTIONS (6)
  - ALOPECIA [None]
  - INSOMNIA [None]
  - IRRITABILITY [None]
  - MENOPAUSE [None]
  - NAIL DISORDER [None]
  - PAIN [None]
